FAERS Safety Report 7999562-7 (Version None)
Quarter: 2011Q4

REPORT INFORMATION
  Report Type: 
  Country: None (occurrence: None)
  Receive Date: 20111221
  Receipt Date: 20111219
  Transmission Date: 20120403
  Serious: Yes (Life-Threatening)
  Sender: FDA-Public Use
  Company Number: AT-GILEAD-2011-0048299

PATIENT
  Age: 62 Year
  Sex: Male

DRUGS (3)
  1. NORVIR [Concomitant]
     Indication: HIV INFECTION
     Dosage: 100 MG, QD
  2. ATRIPLA [Suspect]
     Indication: HIV INFECTION
     Dosage: 1 DF, QD
     Route: 048
     Dates: start: 20110201, end: 20111001
  3. PREZISTA [Concomitant]
     Indication: HIV INFECTION
     Dosage: 400 MG, BID

REACTIONS (3)
  - RENAL FAILURE ACUTE [None]
  - ELECTROLYTE IMBALANCE [None]
  - RHABDOMYOLYSIS [None]
